FAERS Safety Report 11797860 (Version 1)
Quarter: 2015Q4

REPORT INFORMATION
  Report Type: Spontaneous
  Country: US (occurrence: US)
  Receive Date: 20151203
  Receipt Date: 20151203
  Transmission Date: 20160305
  Serious: No
  Sender: FDA-Public Use
  Company Number: US-ENDO PHARMACEUTICALS INC.-OXYB20150001

PATIENT
  Sex: Female

DRUGS (1)
  1. OXYBUTYNIN CHLORIDE TABLETS [Suspect]
     Active Substance: OXYBUTYNIN CHLORIDE
     Indication: URINARY INCONTINENCE
     Route: 048
     Dates: start: 20140127, end: 20140302

REACTIONS (9)
  - Fall [Recovered/Resolved]
  - Dizziness [Unknown]
  - Swelling [Not Recovered/Not Resolved]
  - Scar [Not Recovered/Not Resolved]
  - Choking [Unknown]
  - Drug ineffective [Not Recovered/Not Resolved]
  - Staphylococcal infection [Unknown]
  - Weight increased [Recovering/Resolving]
  - Skin atrophy [Not Recovered/Not Resolved]

NARRATIVE: CASE EVENT DATE: 2014
